FAERS Safety Report 5993135-3 (Version None)
Quarter: 2008Q4

REPORT INFORMATION
  Report Type: 
  Country: None (occurrence: None)
  Receive Date: 20081212
  Receipt Date: 20080603
  Transmission Date: 20090506
  Serious: No
  Sender: FDA-Public Use
  Company Number: US-AMGEN-KDL284577

PATIENT
  Sex: Male

DRUGS (2)
  1. ENBREL [Suspect]
     Indication: PSORIASIS
     Route: 058
     Dates: start: 20041020
  2. INTERFERON [Concomitant]

REACTIONS (3)
  - PLATELET COUNT DECREASED [None]
  - PSORIASIS [None]
  - TEETH BRITTLE [None]
